FAERS Safety Report 17993136 (Version 1)
Quarter: 2020Q3

REPORT INFORMATION
  Report Type: Spontaneous
  Country: CZ (occurrence: CZ)
  Receive Date: 20200708
  Receipt Date: 20200708
  Transmission Date: 20201103
  Serious: Yes (Other)
  Sender: FDA-Public Use
  Company Number: NVSC2020CZ189213

PATIENT
  Age: 62 Year
  Sex: Male

DRUGS (2)
  1. GOSERELIN [Suspect]
     Active Substance: GOSERELIN
     Indication: PROSTATE CANCER STAGE II
     Dosage: 10.8 MG ONCE EVERY 12 WEEKS
     Route: 065
     Dates: start: 2013
  2. ZOLEDRONIC ACID [Suspect]
     Active Substance: ZOLEDRONIC ACID
     Indication: PROSTATE CANCER STAGE II
     Dosage: 4 MG, QW4
     Route: 065
     Dates: start: 2013

REACTIONS (5)
  - Metastases to bone [Unknown]
  - Malignant neoplasm progression [Unknown]
  - Product use in unapproved indication [Unknown]
  - Prostate cancer stage II [Unknown]
  - Prostatic specific antigen increased [Unknown]

NARRATIVE: CASE EVENT DATE: 201504
